FAERS Safety Report 20463178 (Version 1)
Quarter: 2022Q1

REPORT INFORMATION
  Report Type: Spontaneous
  Country: US (occurrence: US)
  Receive Date: 20220211
  Receipt Date: 20220211
  Transmission Date: 20220424
  Serious: Yes (Other)
  Sender: FDA-Public Use
  Company Number: US-Fresenius Medical Care Renal Therapies Group-FMC-2202-000204

PATIENT
  Age: 66 Year
  Sex: Female
  Weight: 52.9 kg

DRUGS (1)
  1. DELFLEX WITH DEXTROSE 1.5% LOW MAGNESIUM LOW CALCIUM [Suspect]
     Active Substance: CALCIUM CHLORIDE\DEXTROSE\MAGNESIUM CHLORIDE\SODIUM CHLORIDE\SODIUM LACTATE
     Indication: End stage renal disease
     Dosage: 5 DAYS A WEEK WITH 1.5% DELFLEX AT 2000 ML FOR 5 CYCLES WITH NO LAST FILL AND NO DAYTIME EXCHANGE.
     Route: 033

REACTIONS (1)
  - Peritonitis [Recovered/Resolved]
